FAERS Safety Report 7597156-9 (Version None)
Quarter: 2011Q3

REPORT INFORMATION
  Report Type: 
  Country: None (occurrence: None)
  Receive Date: 20110708
  Receipt Date: 20100609
  Transmission Date: 20111222
  Serious: Yes (Hospitalization)
  Sender: FDA-Public Use
  Company Number: US-GLAXOSMITHKLINE-A0864040A

PATIENT
  Sex: Male

DRUGS (4)
  1. ANTI-EPILEPTIC MEDICATION [Concomitant]
  2. FLOVENT [Suspect]
     Indication: ASTHMA
     Dosage: 1PUFF TWICE PER DAY
     Route: 055
  3. INHALER [Concomitant]
  4. NEBULIZER [Concomitant]

REACTIONS (1)
  - DRUG INEFFECTIVE [None]
